FAERS Safety Report 4367159-6 (Version None)
Quarter: 2004Q2

REPORT INFORMATION
  Report Type: 
  Country: None (occurrence: None)
  Receive Date: 20040524
  Receipt Date: 20040513
  Transmission Date: 20050107
  Serious: Yes (Other)
  Sender: FDA-Public Use
  Company Number: 200412394BCC

PATIENT
  Age: 18 Year
  Sex: Female
  Weight: 49.8957 kg

DRUGS (1)
  1. ASPIRIN [Suspect]
     Dosage: 1300-2925 MG, ONCE, ORAL
     Route: 048
     Dates: start: 20040513

REACTIONS (3)
  - ANXIETY [None]
  - BLOOD ALCOHOL INCREASED [None]
  - NAUSEA [None]
